FAERS Safety Report 8041533-9 (Version None)
Quarter: 2012Q1

REPORT INFORMATION
  Report Type: 
  Country: None (occurrence: None)
  Receive Date: 20120112
  Receipt Date: 20120103
  Transmission Date: 20120608
  Serious: Yes (Life-Threatening, Hospitalization)
  Sender: FDA-Public Use
  Company Number: US-BAYER-2011-055256

PATIENT
  Age: 45 Year
  Sex: Female
  Weight: 117.91 kg

DRUGS (4)
  1. YAZ [Suspect]
     Indication: CONTRACEPTION
     Dosage: UNK
     Route: 048
     Dates: start: 20090101, end: 20090701
  2. CEPHALEXIN [Concomitant]
     Dosage: 250 MG, UNK
  3. CLARITIN [Concomitant]
     Indication: SEASONAL ALLERGY
  4. IBUPROFEN [Concomitant]

REACTIONS (4)
  - PULMONARY EMBOLISM [None]
  - DEEP VEIN THROMBOSIS [None]
  - PAIN [None]
  - FEAR [None]
